FAERS Safety Report 12431770 (Version 2)
Quarter: 2016Q3

REPORT INFORMATION
  Report Type: Report from Study
  Country: US (occurrence: US)
  Receive Date: 20160603
  Receipt Date: 20160808
  Transmission Date: 20161109
  Serious: Yes (Hospitalization)
  Sender: FDA-Public Use
  Company Number: US-009507513-1606USA000509

PATIENT
  Age: 79 Year
  Sex: Male
  Weight: 66.07 kg

DRUGS (27)
  1. INCB018424 [Suspect]
     Active Substance: RUXOLITINIB
     Indication: PANCREATIC CARCINOMA METASTATIC
     Dosage: UNK, BID
     Route: 048
     Dates: start: 20151119, end: 20151202
  2. XELODA [Suspect]
     Active Substance: CAPECITABINE
     Indication: PANCREATIC CARCINOMA METASTATIC
     Dosage: 3500 MG, QD
     Route: 048
     Dates: start: 20151119, end: 20151201
  3. GLYBURIDE. [Concomitant]
     Active Substance: GLYBURIDE
  4. GLUCOPHAGE [Concomitant]
     Active Substance: METFORMIN HYDROCHLORIDE
  5. CYANOCOBALAMIN. [Suspect]
     Active Substance: CYANOCOBALAMIN
  6. LIPITOR [Concomitant]
     Active Substance: ATORVASTATIN CALCIUM
  7. AVODART [Concomitant]
     Active Substance: DUTASTERIDE
  8. DOCUSATE SODIUM. [Concomitant]
     Active Substance: DOCUSATE SODIUM
  9. INSULIN [Concomitant]
     Active Substance: INSULIN NOS
     Dosage: UNK
     Dates: start: 20151020
  10. PREDNISONE. [Concomitant]
     Active Substance: PREDNISONE
     Dosage: UNK
     Dates: start: 20151029, end: 20151117
  11. INCB018424 [Suspect]
     Active Substance: RUXOLITINIB
     Dosage: UNK, BID
     Route: 048
     Dates: start: 20151217
  12. FLOMAX [Concomitant]
     Active Substance: TAMSULOSIN HYDROCHLORIDE
  13. SCHIFF MEGARED OMEGA-3 KRILL OIL [Concomitant]
  14. XELODA [Suspect]
     Active Substance: CAPECITABINE
     Dosage: 3500 MG, QD
     Route: 048
     Dates: start: 20151223
  15. PLAVIX [Concomitant]
     Active Substance: CLOPIDOGREL BISULFATE
  16. MAGNESIUM (UNSPECIFIED) [Concomitant]
     Active Substance: MAGNESIUM
  17. PROTONIX [Concomitant]
     Active Substance: PANTOPRAZOLE SODIUM
  18. SYMBICORT [Concomitant]
     Active Substance: BUDESONIDE\FORMOTEROL FUMARATE DIHYDRATE
  19. NYSTATIN. [Concomitant]
     Active Substance: NYSTATIN
     Indication: ORAL PAIN
     Dosage: UNK
     Dates: start: 20151126
  20. ERGOCALCIFEROL. [Concomitant]
     Active Substance: ERGOCALCIFEROL
  21. SINGULAIR [Concomitant]
     Active Substance: MONTELUKAST SODIUM
  22. ZANTAC [Concomitant]
     Active Substance: RANITIDINE HYDROCHLORIDE
     Dosage: UNK
     Dates: start: 20151125
  23. MIRALAX [Concomitant]
     Active Substance: POLYETHYLENE GLYCOL 3350
  24. REMERON [Suspect]
     Active Substance: MIRTAZAPINE
     Dosage: 15 MG, HS
     Route: 048
     Dates: start: 20151206
  25. VITAMINS (UNSPECIFIED) [Concomitant]
     Active Substance: VITAMINS
  26. VERAMYST [Concomitant]
     Active Substance: FLUTICASONE FUROATE
  27. REMERON [Suspect]
     Active Substance: MIRTAZAPINE
     Indication: APPETITE DISORDER
     Dosage: 30 MG, HS
     Route: 048
     Dates: start: 201409, end: 20151202

REACTIONS (4)
  - Hyponatraemia [Recovered/Resolved]
  - Syncope [Unknown]
  - Pyrexia [Unknown]
  - Stomatitis [Recovered/Resolved]

NARRATIVE: CASE EVENT DATE: 20151130
